FAERS Safety Report 6888868-0 (Version None)
Quarter: 2010Q3

REPORT INFORMATION
  Report Type: 
  Country: None (occurrence: None)
  Receive Date: 20100730
  Receipt Date: 20071120
  Transmission Date: 20110219
  Serious: No
  Sender: FDA-Public Use
  Company Number: US-PFIZER INC-2007098198

PATIENT
  Sex: Male
  Weight: 76.2 kg

DRUGS (7)
  1. LIPITOR [Suspect]
     Indication: BLOOD CHOLESTEROL
     Route: 048
     Dates: end: 20070101
  2. TAMSULOSIN HCL [Suspect]
  3. NIACIN [Suspect]
  4. ATENOLOL [Concomitant]
  5. LISINOPRIL [Concomitant]
  6. ALL OTHER THERAPEUTIC PRODUCTS [Concomitant]
  7. ACETAMINOPHEN AND HYDROCODONE BITARTRATE [Concomitant]

REACTIONS (3)
  - BACK PAIN [None]
  - BLOOD CHOLESTEROL INCREASED [None]
  - NECK PAIN [None]
